FAERS Safety Report 13532899 (Version 1)
Quarter: 2017Q2

REPORT INFORMATION
  Report Type: Spontaneous
  Country: US (occurrence: US)
  Receive Date: 20170510
  Receipt Date: 20170510
  Transmission Date: 20170830
  Serious: No
  Sender: FDA-Public Use
  Company Number: US-PERRIGO-16US019325

PATIENT
  Sex: Female

DRUGS (1)
  1. MICONAZOLE 3 COMBINATION PACK [Suspect]
     Active Substance: MICONAZOLE NITRATE
     Indication: PRODUCT USED FOR UNKNOWN INDICATION
     Dosage: 200 MG, SINGLE
     Route: 067
     Dates: start: 201608, end: 201608

REACTIONS (3)
  - Vulvovaginal discomfort [Unknown]
  - Vulvovaginal swelling [Unknown]
  - Vulvovaginal erythema [Unknown]

NARRATIVE: CASE EVENT DATE: 201608
